FAERS Safety Report 8609173-8 (Version None)
Quarter: 2012Q3

REPORT INFORMATION
  Report Type: 
  Country: None (occurrence: None)
  Receive Date: 20120821
  Receipt Date: 20120806
  Transmission Date: 20120928
  Serious: Yes (Other)
  Sender: FDA-Public Use
  Company Number: IT-ARROW-2012-14470

PATIENT
  Age: 69 Year
  Sex: Male

DRUGS (2)
  1. QUETIAPINE [Suspect]
     Indication: INSOMNIA
     Dosage: 25 MG, DAILY
     Route: 065
  2. PRAMIPEXOLE DIHYDROCHLORIDE [Suspect]
     Indication: PROGRESSIVE SUPRANUCLEAR PALSY
     Dosage: 1.05 MG, DAILY
     Route: 065

REACTIONS (1)
  - PLEUROTHOTONUS [None]
